FAERS Safety Report 7909831-4 (Version None)
Quarter: 2011Q4

REPORT INFORMATION
  Report Type: 
  Country: None (occurrence: None)
  Receive Date: 20111111
  Receipt Date: 20111110
  Transmission Date: 20120403
  Serious: Yes (Hospitalization)
  Sender: FDA-Public Use
  Company Number: FR-MERCK-1002FRA00070

PATIENT
  Age: 56 Year
  Sex: Male

DRUGS (20)
  1. CLARITHROMYCIN [Suspect]
     Route: 042
     Dates: start: 20080629, end: 20080714
  2. ACETAMINOPHEN [Suspect]
     Route: 042
     Dates: start: 20080629, end: 20080717
  3. DESLORATADINE [Suspect]
     Route: 048
     Dates: start: 20080709
  4. VENOFER [Suspect]
     Route: 042
     Dates: start: 20080711
  5. ACETAMINOPHEN [Suspect]
     Route: 048
     Dates: start: 20080718
  6. FLUCONAZOLE [Concomitant]
     Route: 048
     Dates: start: 20080725
  7. CIPRO [Suspect]
     Route: 042
     Dates: start: 20080702, end: 20080704
  8. INNOHEP [Concomitant]
     Route: 042
     Dates: start: 20080629, end: 20080704
  9. TPN [Suspect]
     Route: 065
     Dates: start: 20080711
  10. MOXIFLOXACIN HCL [Suspect]
     Route: 051
     Dates: start: 20080629, end: 20080702
  11. LEVOFLOXACIN [Suspect]
     Route: 042
     Dates: start: 20080703
  12. PRIMAXIN [Suspect]
     Indication: PSEUDOMONAS INFECTION
     Route: 042
     Dates: start: 20080718
  13. PIPERACILLIN AND TAZOBACTAM [Suspect]
     Route: 042
     Dates: start: 20080707, end: 20080711
  14. ZYVOX [Suspect]
     Route: 048
     Dates: start: 20080714
  15. OMEPRAZOLE [Suspect]
     Route: 048
     Dates: start: 20080717
  16. SOLU-MEDROL [Concomitant]
     Route: 048
     Dates: start: 20080720
  17. ATARAX (ALPRAZOLAM) [Concomitant]
     Route: 048
     Dates: start: 20080725
  18. SUCRALFATE [Concomitant]
     Route: 048
     Dates: start: 20080630, end: 20080716
  19. LOVENOX [Suspect]
     Route: 058
     Dates: start: 20080705
  20. ROCEPHIN [Suspect]
     Route: 042
     Dates: start: 20080629, end: 20080702

REACTIONS (1)
  - CYTOLYTIC HEPATITIS [None]
